FAERS Safety Report 8538917-9 (Version None)
Quarter: 2012Q3

REPORT INFORMATION
  Report Type: 
  Country: None (occurrence: None)
  Receive Date: 20120726
  Receipt Date: 20120718
  Transmission Date: 20120928
  Serious: Yes (Hospitalization)
  Sender: FDA-Public Use
  Company Number: ES-SANOFI-AVENTIS-2012SA051176

PATIENT
  Age: 58 Year
  Sex: Female

DRUGS (4)
  1. RIFAMPIN AND ISONIAZID [Suspect]
     Route: 065
     Dates: start: 20120316
  2. RIFAMPIN AND ISONIAZID [Suspect]
     Indication: PULMONARY TUBERCULOSIS
     Route: 048
     Dates: start: 20120307, end: 20120312
  3. PYRAZINAMIDE [Suspect]
     Indication: PULMONARY TUBERCULOSIS
     Route: 048
     Dates: start: 20120307, end: 20120312
  4. PYRAZINAMIDE [Suspect]
     Route: 065
     Dates: start: 20120321

REACTIONS (2)
  - AGITATION [None]
  - ANXIETY [None]
